FAERS Safety Report 7800267 (Version 11)
Quarter: 2013Q1

REPORT INFORMATION
  Report Type: Spontaneous
  Country: US (occurrence: US)
  Receive Date: 20110204
  Receipt Date: 20130306
  Transmission Date: 20140127
  Serious: Yes (Hospitalization, Other)
  Sender: FDA-Public Use
  Company Number: US-US-EMD SERONO, INC.-7039021

PATIENT
  Sex: Female

DRUGS (2)
  1. REBIF [Suspect]
     Indication: MULTIPLE SCLEROSIS
     Route: 058
     Dates: start: 20071221, end: 201302
  2. UNSPECIFIED MEDICATIONS [Concomitant]

REACTIONS (9)
  - Self injurious behaviour [Not Recovered/Not Resolved]
  - Bipolar disorder [Not Recovered/Not Resolved]
  - Personality disorder [Unknown]
  - Affective disorder [Recovering/Resolving]
  - Post procedural infection [Unknown]
  - Central nervous system lesion [Unknown]
  - Muscle twitching [Not Recovered/Not Resolved]
  - Dizziness [Unknown]
  - Injection site erythema [Not Recovered/Not Resolved]
